FAERS Safety Report 4991477-1 (Version None)
Quarter: 2006Q2

REPORT INFORMATION
  Report Type: 
  Country: None (occurrence: None)
  Receive Date: 20060502
  Receipt Date: 20060323
  Transmission Date: 20061013
  Serious: Yes (Other)
  Sender: FDA-Public Use
  Company Number: 200610387BVD

PATIENT
  Sex: Male

DRUGS (1)
  1. VARDENAFIL [Suspect]

REACTIONS (6)
  - BACK PAIN [None]
  - DIARRHOEA [None]
  - GASTRIC HAEMORRHAGE [None]
  - HEADACHE [None]
  - MELAENA [None]
  - VISUAL DISTURBANCE [None]
